FAERS Safety Report 7703937-0 (Version None)
Quarter: 2011Q3

REPORT INFORMATION
  Report Type: 
  Country: None (occurrence: None)
  Receive Date: 20110823
  Receipt Date: 20110811
  Transmission Date: 20111222
  Serious: Yes (Other)
  Sender: FDA-Public Use
  Company Number: JP-ROCHE-797460

PATIENT
  Age: 60 Year
  Sex: Female
  Weight: 45 kg

DRUGS (3)
  1. INTERFERON BETA NOS [Suspect]
     Indication: HEPATITIS C
     Route: 065
     Dates: start: 20090101, end: 20090101
  2. COPEGUS [Suspect]
     Indication: HEPATITIS C
     Route: 048
     Dates: start: 20090101, end: 20091001
  3. PEGASYS [Suspect]
     Indication: HEPATITIS C
     Route: 058
     Dates: start: 20090101, end: 20091001

REACTIONS (2)
  - NEUROMYELITIS OPTICA [None]
  - AUTONOMIC NERVOUS SYSTEM IMBALANCE [None]
